FAERS Safety Report 7106077-7 (Version None)
Quarter: 2010Q4

REPORT INFORMATION
  Report Type: 
  Country: None (occurrence: None)
  Receive Date: 20101116
  Receipt Date: 20101112
  Transmission Date: 20110411
  Serious: Yes (Other)
  Sender: FDA-Public Use
  Company Number: US-JNJCH-2010018932

PATIENT
  Age: 6 Month
  Sex: Female

DRUGS (1)
  1. CHILDREN'S ZYRTEC ALLERGY [Suspect]
     Indication: HYPERSENSITIVITY
     Dosage: TEXT:HALF A TEASPOON DAILY AT NIGHT
     Route: 048

REACTIONS (4)
  - PRODUCT QUALITY ISSUE [None]
  - THERAPEUTIC RESPONSE UNEXPECTED [None]
  - TOOTH EROSION [None]
  - WRONG DRUG ADMINISTERED [None]
